FAERS Safety Report 5952093-8 (Version None)
Quarter: 2008Q4

REPORT INFORMATION
  Report Type: 
  Country: None (occurrence: None)
  Receive Date: 20081113
  Receipt Date: 20080411
  Transmission Date: 20090506
  Serious: No
  Sender: FDA-Public Use
  Company Number: A0718739A

PATIENT
  Sex: Female

DRUGS (3)
  1. CARVEDILOL [Suspect]
     Indication: MYOCARDIAL INFARCTION
     Dosage: 12.5MG TWICE PER DAY
     Route: 048
  2. COREG CR [Suspect]
     Indication: MYOCARDIAL INFARCTION
     Dosage: 40MG UNKNOWN
     Route: 048
  3. CONCURRENT MEDICATIONS [Concomitant]

REACTIONS (3)
  - ADVERSE EVENT [None]
  - DRUG INTOLERANCE [None]
  - ILL-DEFINED DISORDER [None]
